FAERS Safety Report 8487891-2 (Version None)
Quarter: 2012Q3

REPORT INFORMATION
  Report Type: 
  Country: None (occurrence: None)
  Receive Date: 20120705
  Receipt Date: 20120626
  Transmission Date: 20120928
  Serious: Yes (Hospitalization, Other)
  Sender: FDA-Public Use
  Company Number: US-US-EMD SERONO, INC.-7144166

PATIENT
  Sex: Male

DRUGS (1)
  1. REBIF [Suspect]
     Indication: PRODUCT USED FOR UNKNOWN INDICATION
     Route: 058
     Dates: start: 20120414

REACTIONS (4)
  - DECUBITUS ULCER [None]
  - URINARY TRACT INFECTION [None]
  - CLOSTRIDIAL INFECTION [None]
  - DEHYDRATION [None]
